FAERS Safety Report 17785357 (Version 1)
Quarter: 2020Q2

REPORT INFORMATION
  Report Type: Spontaneous
  Country: ES (occurrence: ES)
  Receive Date: 20200514
  Receipt Date: 20200514
  Transmission Date: 20200714
  Serious: Yes (Death)
  Sender: FDA-Public Use
  Company Number: ES-PFIZER INC-2020187763

PATIENT
  Age: 39 Year
  Sex: Male

DRUGS (10)
  1. ENOXAPARIN SODIUM. [Concomitant]
     Active Substance: ENOXAPARIN SODIUM
     Dosage: UNK
     Route: 058
     Dates: start: 20200327, end: 20200409
  2. CEFOTAXIME [Concomitant]
     Active Substance: CEFOTAXIME SODIUM
     Indication: PNEUMONIA KLEBSIELLA
     Dosage: 4 G, 2X/DAY
     Route: 041
     Dates: start: 20200408, end: 20200409
  3. IPRATROPIUM BROMIDE. [Concomitant]
     Active Substance: IPRATROPIUM BROMIDE
     Dosage: 20 UG, 4X/DAY
     Route: 055
     Dates: start: 20200404, end: 20200409
  4. PROPOFOL. [Suspect]
     Active Substance: PROPOFOL
     Indication: SEDATION
     Dosage: UNK
     Route: 042
     Dates: start: 20200408, end: 20200409
  5. METOCLOPRAMID [METOCLOPRAMIDE] [Suspect]
     Active Substance: METOCLOPRAMIDE
     Dosage: 10 MG, 3X/DAY
     Route: 042
     Dates: start: 20200329, end: 20200409
  6. MIDAZOLAM. [Concomitant]
     Active Substance: MIDAZOLAM
     Indication: SEDATION
     Dosage: 100 MG, 1X/DAY
     Route: 041
     Dates: start: 20200327, end: 20200409
  7. DOLQUINE [Suspect]
     Active Substance: HYDROXYCHLOROQUINE SULFATE
     Indication: CORONAVIRUS INFECTION
     Dosage: 400 MG, 2X/DAY
     Route: 048
     Dates: start: 20200327, end: 20200401
  8. SALBUTAMOL [Suspect]
     Active Substance: ALBUTEROL
     Dosage: 0.1 MG, 4X/DAY
     Route: 055
     Dates: start: 20200404, end: 20200409
  9. AZITHROMYCIN ANHYDROUS. [Suspect]
     Active Substance: AZITHROMYCIN ANHYDROUS
     Indication: CORONAVIRUS INFECTION
     Dosage: 500 MG, 1X/DAY
     Route: 048
     Dates: start: 20200327, end: 20200330
  10. TOCILIZUMAB. [Concomitant]
     Active Substance: TOCILIZUMAB
     Indication: CORONAVIRUS INFECTION
     Dosage: 600 MG, 1X/DAY
     Route: 042
     Dates: start: 20200327, end: 20200327

REACTIONS (4)
  - Product use in unapproved indication [Unknown]
  - Off label use [Unknown]
  - Sudden death [Fatal]
  - Long QT syndrome [Fatal]

NARRATIVE: CASE EVENT DATE: 20200327
